FAERS Safety Report 24639457 (Version 1)
Quarter: 2024Q4

REPORT INFORMATION
  Report Type: Spontaneous
  Country: US (occurrence: US)
  Receive Date: 20241119
  Receipt Date: 20241119
  Transmission Date: 20250115
  Serious: No
  Sender: CIPLA
  Company Number: US-CIPLA LTD.-2024US07217

PATIENT

DRUGS (3)
  1. GABAPENTIN [Suspect]
     Active Substance: GABAPENTIN
     Indication: Neuralgia
     Dosage: 1 CAPSULE FOR FIRST WEEK
     Route: 065
     Dates: start: 20240701
  2. GABAPENTIN [Suspect]
     Active Substance: GABAPENTIN
     Indication: Neuropathy peripheral
     Dosage: 2 CAPSULES FOR SECOND WEEK
     Route: 065
     Dates: start: 20240701
  3. GABAPENTIN [Suspect]
     Active Substance: GABAPENTIN
     Dosage: 3 CAPSULES FOR THIRD WEEK
     Route: 065
     Dates: start: 20240701

REACTIONS (1)
  - Off label use [Unknown]

NARRATIVE: CASE EVENT DATE: 20240701
